FAERS Safety Report 6839721-X (Version None)
Quarter: 2010Q2

REPORT INFORMATION
  Report Type: 
  Country: None (occurrence: None)
  Receive Date: 20100629
  Receipt Date: 20100326
  Transmission Date: 20101027
  Serious: No
  Sender: FDA-Public Use
  Company Number: US-WYE-H13621010

PATIENT
  Age: 46 Year
  Sex: Female
  Weight: 131.66 kg

DRUGS (6)
  1. PRISTIQ [Suspect]
     Indication: DEPRESSION
     Dosage: 50 MG 1X PER 1 DAY, ORAL
     Route: 048
     Dates: start: 20090401
  2. CARBOCAINE [Suspect]
     Dosage: 3% WITHOUT EPINEPHRINE
     Dates: start: 20100212, end: 20100212
  3. EPHEDRINE SUL CAP [Suspect]
     Dosage: UNKNOWN FOR DENTAL WORK
  4. XYLOCAINE [Suspect]
     Dosage: 2 CARPULES OF 2% WITH 1:100K EPI FOR DENTAL WORK
     Dates: start: 20100120, end: 20100120
  5. SYNTHROID [Concomitant]
  6. METFORMIN HCL [Concomitant]

REACTIONS (7)
  - ABNORMAL BEHAVIOUR [None]
  - CONFUSIONAL STATE [None]
  - DRUG INTERACTION [None]
  - FATIGUE [None]
  - FEELING ABNORMAL [None]
  - FEELING DRUNK [None]
  - NIGHTMARE [None]
